FAERS Safety Report 9174555 (Version 1)
Quarter: 2013Q1

REPORT INFORMATION
  Report Type: Spontaneous
  Country: US (occurrence: US)
  Receive Date: 20130320
  Receipt Date: 20130320
  Transmission Date: 20140127
  Serious: No
  Sender: FDA-Public Use
  Company Number: US-MYLANLABS-2012S1021532

PATIENT
  Age: 36 Year
  Sex: Female
  Weight: 86.18 kg

DRUGS (2)
  1. ESTRADIOL TRANSDERMAL SYSTEM, USP [Suspect]
     Indication: HORMONE THERAPY
     Dosage: CHANGE WEEKLY
     Route: 062
     Dates: start: 20121001, end: 20121006
  2. CARDIZEM [Concomitant]
     Indication: PALPITATIONS

REACTIONS (3)
  - Application site pruritus [Recovering/Resolving]
  - Application site erythema [Recovering/Resolving]
  - Insomnia [Recovering/Resolving]
